FAERS Safety Report 22387275 (Version 1)
Quarter: 2023Q2

REPORT INFORMATION
  Report Type: Report from Study
  Country: CA (occurrence: CA)
  Receive Date: 20230531
  Receipt Date: 20230531
  Transmission Date: 20230721
  Serious: Yes (Hospitalization)
  Sender: FDA-Public Use
  Company Number: CA-ABBVIE-5185410

PATIENT
  Age: 73 Year
  Sex: Female

DRUGS (3)
  1. SKYRIZI [Suspect]
     Active Substance: RISANKIZUMAB-RZAA
     Indication: Crohn^s disease
     Route: 058
     Dates: start: 20230228
  2. SKYRIZI [Suspect]
     Active Substance: RISANKIZUMAB-RZAA
     Indication: Psoriasis
     Route: 058
     Dates: start: 20230518
  3. SKYRIZI [Suspect]
     Active Substance: RISANKIZUMAB-RZAA
     Route: 058
     Dates: start: 20201218

REACTIONS (4)
  - Subcutaneous abscess [Unknown]
  - Urinary tract infection [Recovered/Resolved]
  - Fatigue [Unknown]
  - Haematological infection [Unknown]

NARRATIVE: CASE EVENT DATE: 20230519
